FAERS Safety Report 4602111-4 (Version None)
Quarter: 2005Q1

REPORT INFORMATION
  Report Type: 
  Country: None (occurrence: None)
  Receive Date: 20050131
  Receipt Date: 20041221
  Transmission Date: 20050727
  Serious: No
  Sender: FDA-Public Use
  Company Number: 200417714US

PATIENT
  Age: 44 Year
  Sex: Female
  Weight: 59 kg

DRUGS (5)
  1. KETEK [Suspect]
     Indication: INFLUENZA
     Dosage: 800 MG QD PO
     Route: 048
     Dates: start: 20040925, end: 20040927
  2. KETEK [Suspect]
     Indication: PHARYNGOLARYNGEAL PAIN
     Dosage: 800 MG QD PO
     Route: 048
     Dates: start: 20040925, end: 20040927
  3. KETEK [Suspect]
     Indication: SINUSITIS
     Dosage: 800 MG QD PO
     Route: 048
     Dates: start: 20040925, end: 20040927
  4. SYNTHROID [Concomitant]
  5. CELEXA [Concomitant]

REACTIONS (3)
  - COLOUR BLINDNESS [None]
  - READING DISORDER [None]
  - VISION BLURRED [None]
